FAERS Safety Report 9936950 (Version 1)
Quarter: 2014Q1

REPORT INFORMATION
  Report Type: Spontaneous
  Country: US (occurrence: None)
  Receive Date: 20140115
  Receipt Date: 20140115
  Transmission Date: 20141002
  Serious: No
  Sender: FDA-Public Use
  Company Number: 2013US002611

PATIENT
  Sex: Male

DRUGS (1)
  1. ICLUSIG [Suspect]
     Route: 048

REACTIONS (3)
  - Cardiac disorder [None]
  - Muscle atrophy [None]
  - Muscular weakness [None]
